FAERS Safety Report 16382262 (Version 1)
Quarter: 2019Q2

REPORT INFORMATION
  Report Type: Spontaneous
  Country: US (occurrence: US)
  Receive Date: 20190603
  Receipt Date: 20190603
  Transmission Date: 20190711
  Serious: No
  Sender: FDA-Public Use
  Company Number: US-BAYER-2019-107242

PATIENT
  Age: 43 Year
  Sex: Male
  Weight: 98 kg

DRUGS (3)
  1. CLARITIN [Suspect]
     Active Substance: LORATADINE
     Indication: HYPERSENSITIVITY
     Dosage: 1 DF, QD
     Route: 048
     Dates: start: 20190518, end: 20190531
  2. CLARITIN [Suspect]
     Active Substance: LORATADINE
     Indication: NASOPHARYNGITIS
  3. MULTIVITAMINS PLUS IRON [Concomitant]
     Active Substance: IRON\VITAMINS

REACTIONS (2)
  - Product use complaint [None]
  - Drug ineffective [Unknown]

NARRATIVE: CASE EVENT DATE: 20190518
